FAERS Safety Report 9386831 (Version 3)
Quarter: 2013Q3

REPORT INFORMATION
  Report Type: Spontaneous
  Country: US (occurrence: US)
  Receive Date: 20130708
  Receipt Date: 20130809
  Transmission Date: 20140515
  Serious: No
  Sender: FDA-Public Use
  Company Number: US-PFIZER INC-2013198996

PATIENT
  Age: 82 Year
  Sex: Female
  Weight: 68.03 kg

DRUGS (1)
  1. PREMARIN [Suspect]
     Indication: VULVAL DISORDER
     Dosage: 0.5 G, 1X/DAY
     Route: 067
     Dates: start: 201306

REACTIONS (4)
  - Hypersensitivity [Unknown]
  - Vulvovaginal rash [Unknown]
  - Vulvovaginal swelling [Unknown]
  - Pruritus [Unknown]
